FAERS Safety Report 20234430 (Version 2)
Quarter: 2022Q1

REPORT INFORMATION
  Report Type: Report from Study
  Country: US (occurrence: US)
  Receive Date: 20211227
  Receipt Date: 20220211
  Transmission Date: 20220423
  Serious: Yes (Other)
  Sender: FDA-Public Use
  Company Number: US-TAKEDA-2021TUS075191

PATIENT
  Age: 64 Year
  Sex: Female
  Weight: 96 kg

DRUGS (12)
  1. TEDUGLUTIDE [Suspect]
     Active Substance: TEDUGLUTIDE
     Indication: Short-bowel syndrome
     Dosage: 3.66 MILLIGRAM, QD
     Route: 058
     Dates: start: 20211030
  2. TEDUGLUTIDE [Suspect]
     Active Substance: TEDUGLUTIDE
     Indication: Short-bowel syndrome
     Dosage: 3.66 MILLIGRAM, QD
     Route: 058
     Dates: start: 20211030
  3. TEDUGLUTIDE [Suspect]
     Active Substance: TEDUGLUTIDE
     Indication: Short-bowel syndrome
     Dosage: 3.66 MILLIGRAM, QD
     Route: 058
     Dates: start: 20211030
  4. TEDUGLUTIDE [Suspect]
     Active Substance: TEDUGLUTIDE
     Indication: Short-bowel syndrome
     Dosage: 3.66 MILLIGRAM, QD
     Route: 058
     Dates: start: 20211030
  5. TEDUGLUTIDE [Suspect]
     Active Substance: TEDUGLUTIDE
     Dosage: 3.66 MILLIGRAM, QD
     Route: 058
     Dates: start: 202110
  6. TEDUGLUTIDE [Suspect]
     Active Substance: TEDUGLUTIDE
     Dosage: 3.66 MILLIGRAM, QD
     Route: 058
     Dates: start: 202110
  7. TEDUGLUTIDE [Suspect]
     Active Substance: TEDUGLUTIDE
     Dosage: 3.66 MILLIGRAM, QD
     Route: 058
     Dates: start: 202110
  8. TEDUGLUTIDE [Suspect]
     Active Substance: TEDUGLUTIDE
     Dosage: 3.66 MILLIGRAM, QD
     Route: 058
     Dates: start: 202110
  9. TEDUGLUTIDE [Suspect]
     Active Substance: TEDUGLUTIDE
     Dosage: 4.81 MILLIGRAM
     Route: 058
     Dates: start: 20211030
  10. TEDUGLUTIDE [Suspect]
     Active Substance: TEDUGLUTIDE
     Dosage: 4.81 MILLIGRAM
     Route: 058
     Dates: start: 20211030
  11. TEDUGLUTIDE [Suspect]
     Active Substance: TEDUGLUTIDE
     Dosage: 4.81 MILLIGRAM
     Route: 058
     Dates: start: 20211030
  12. TEDUGLUTIDE [Suspect]
     Active Substance: TEDUGLUTIDE
     Dosage: 4.81 MILLIGRAM
     Route: 058
     Dates: start: 20211030

REACTIONS (8)
  - Small intestinal obstruction [Recovered/Resolved]
  - Nephrolithiasis [Unknown]
  - Vomiting [Not Recovered/Not Resolved]
  - Abdominal pain [Not Recovered/Not Resolved]
  - Insomnia [Not Recovered/Not Resolved]
  - Sleep disorder [Unknown]
  - Nausea [Recovered/Resolved]
  - Constipation [Recovered/Resolved]

NARRATIVE: CASE EVENT DATE: 20211101
